FAERS Safety Report 8928729 (Version 1)
Quarter: 2012Q4

REPORT INFORMATION
  Report Type: Spontaneous
  Country: US (occurrence: None)
  Receive Date: 20121126
  Receipt Date: 20121126
  Transmission Date: 20130627
  Serious: Yes (Life-Threatening)
  Sender: FDA-Public Use
  Company Number: None

PATIENT
  Age: 75 Year
  Sex: Male
  Weight: 99.79 kg

DRUGS (6)
  1. ANDROGEL 1% SOLVAY PHARMACEUTICALS [Suspect]
     Indication: TESTOSTERONE LOW
     Dosage: 4 pumps   daily   top
     Route: 061
     Dates: start: 20120412, end: 20120520
  2. ANDROGEL 1% SOLVAY PHARMACEUTICALS [Suspect]
     Indication: TESTOSTERONE HIGH
     Dosage: 4 pumps   daily   top
     Route: 061
     Dates: start: 20120412, end: 20120520
  3. ANDROGEL 1% SOLVAY PHARMACEUTICALS [Suspect]
     Indication: ENERGY DECREASED
     Dosage: 4 pumps   daily   top
     Route: 061
     Dates: start: 20120412, end: 20120520
  4. ANDROGEL 1% SOLVAY PHARMACEUTICALS [Suspect]
     Indication: TESTOSTERONE LOW
     Dosage: 3 pumps   daily   top
     Route: 061
     Dates: start: 20120521, end: 20121031
  5. ANDROGEL 1% SOLVAY PHARMACEUTICALS [Suspect]
     Indication: TESTOSTERONE HIGH
     Dosage: 3 pumps   daily   top
     Route: 061
     Dates: start: 20120521, end: 20121031
  6. ANDROGEL 1% SOLVAY PHARMACEUTICALS [Suspect]
     Indication: ENERGY DECREASED
     Dosage: 3 pumps   daily   top
     Route: 061
     Dates: start: 20120521, end: 20121031

REACTIONS (4)
  - Oedema peripheral [None]
  - Erythema [None]
  - Myalgia [None]
  - Thrombosis [None]
